FAERS Safety Report 23577209 (Version 1)
Quarter: 2024Q1

REPORT INFORMATION
  Report Type: Report from Study
  Country: US (occurrence: US)
  Receive Date: 20240228
  Receipt Date: 20240228
  Transmission Date: 20240410
  Serious: No
  Sender: FDA-Public Use
  Company Number: US-drreddys-SPO/USA/23/0175127

PATIENT
  Age: 2 Year
  Sex: Male

DRUGS (1)
  1. SAPROPTERIN DIHYDROCHLORIDE [Suspect]
     Active Substance: SAPROPTERIN DIHYDROCHLORIDE
     Indication: Phenylketonuria
     Route: 048
     Dates: start: 20230802

REACTIONS (7)
  - Headache [Recovered/Resolved]
  - COVID-19 [Unknown]
  - Drug ineffective [Unknown]
  - Product quality issue [Unknown]
  - Product dose omission issue [Unknown]
  - Pharyngitis [Recovered/Resolved]
  - Vomiting [Recovered/Resolved]

NARRATIVE: CASE EVENT DATE: 20230805
